FAERS Safety Report 7474035-9 (Version None)
Quarter: 2011Q2

REPORT INFORMATION
  Report Type: 
  Country: None (occurrence: None)
  Receive Date: 20110511
  Receipt Date: 20110506
  Transmission Date: 20111010
  Serious: Yes (Hospitalization, Other)
  Sender: FDA-Public Use
  Company Number: FR-PFIZER INC-2011097817

PATIENT
  Age: 88 Year
  Sex: Male

DRUGS (13)
  1. REPAGLINIDE [Concomitant]
  2. ALLOPURINOL [Concomitant]
  3. DUPHALAC [Concomitant]
  4. COVERSYL [Concomitant]
  5. ACUPAN [Concomitant]
     Dosage: 10 MG, 2X/DAY
     Route: 048
     Dates: start: 20110111
  6. ASPIRIN [Concomitant]
  7. PRAVASTATIN [Concomitant]
  8. AUGMENTIN [Concomitant]
     Dosage: UNK
     Dates: start: 20110110, end: 20110124
  9. LASIX [Concomitant]
  10. LYRICA [Suspect]
     Dosage: 50 MG, 2X/DAY
     Route: 048
     Dates: start: 20101109, end: 20110111
  11. PARACETAMOL [Concomitant]
  12. NITRODERM [Concomitant]
  13. PREVISCAN [Concomitant]
     Dosage: 0.75 DF, 1X/DAY

REACTIONS (5)
  - MYOCLONUS [None]
  - ULCER [None]
  - DYSARTHRIA [None]
  - RESPIRATORY ARREST [None]
  - ERYSIPELAS [None]
